FAERS Safety Report 7335373-3 (Version None)
Quarter: 2011Q1

REPORT INFORMATION
  Report Type: 
  Country: None (occurrence: None)
  Receive Date: 20110302
  Receipt Date: 20110302
  Transmission Date: 20110831
  Serious: Yes (Other)
  Sender: FDA-Public Use
  Company Number: None

PATIENT
  Sex: Female
  Weight: 77.1115 kg

DRUGS (9)
  1. BENICAR HCT [Concomitant]
  2. ASPIRIN [Concomitant]
  3. COUMADIN [Concomitant]
  4. POTASSIUM CHLORIDE [Concomitant]
  5. TOPROL-XL [Concomitant]
  6. MULTAQ [Suspect]
     Indication: ATRIAL FIBRILLATION
     Dosage: 400 MGM 2XD PO
     Route: 048
     Dates: start: 20090901, end: 20110113
  7. MULTAQ [Suspect]
     Indication: ATRIAL FLUTTER
     Dosage: 400 MGM 2XD PO
     Route: 048
     Dates: start: 20090901, end: 20110113
  8. LESCOL XL [Concomitant]
  9. NORVASC [Concomitant]

REACTIONS (2)
  - ANAEMIA [None]
  - MULTIPLE MYELOMA [None]
